FAERS Safety Report 19057980 (Version 1)
Quarter: 2021Q1

REPORT INFORMATION
  Report Type: Spontaneous
  Country: US (occurrence: US)
  Receive Date: 20210324
  Receipt Date: 20210324
  Transmission Date: 20210420
  Serious: No
  Sender: FDA-Public Use
  Company Number: US-UPSHER-SMITH LABORATORIES, LLC-2020USL00304

PATIENT
  Age: 66 Year
  Sex: Female

DRUGS (2)
  1. DIPHENOXYLATE AND ATROPINE [Concomitant]
     Active Substance: ATROPINE SULFATE\DIPHENOXYLATE HYDROCHLORIDE
  2. PREVALITE [Suspect]
     Active Substance: CHOLESTYRAMINE
     Indication: DIARRHOEA
     Dosage: 4 G, 3X/DAY
     Route: 048
     Dates: start: 20200507, end: 20200514

REACTIONS (2)
  - Throat irritation [Unknown]
  - Gastrointestinal haemorrhage [Unknown]

NARRATIVE: CASE EVENT DATE: 202005
